FAERS Safety Report 21592123 (Version 5)
Quarter: 2023Q1

REPORT INFORMATION
  Report Type: Report from Study
  Country: MX (occurrence: MX)
  Receive Date: 20221114
  Receipt Date: 20230321
  Transmission Date: 20230418
  Serious: Yes (Other)
  Sender: FDA-Public Use
  Company Number: MX-002147023-NVSC2022MX200391

PATIENT
  Sex: Female

DRUGS (3)
  1. TASIGNA [Suspect]
     Active Substance: NILOTINIB
     Indication: Chronic myeloid leukaemia
     Dosage: UNK
     Route: 048
  2. METOPROLOL [Concomitant]
     Active Substance: METOPROLOL
     Indication: Product used for unknown indication
     Dosage: UNK
     Route: 065
  3. CARBAMAZEPINE [Concomitant]
     Active Substance: CARBAMAZEPINE
     Indication: Neuralgia
     Dosage: UNK
     Route: 065

REACTIONS (25)
  - Ovarian cancer [Unknown]
  - Second primary malignancy [Unknown]
  - COVID-19 [Unknown]
  - Liver disorder [Unknown]
  - Memory impairment [Unknown]
  - Feeling abnormal [Unknown]
  - Trigeminal neuralgia [Unknown]
  - Eating disorder [Unknown]
  - Influenza [Unknown]
  - Frustration tolerance decreased [Unknown]
  - Illness [Unknown]
  - Psychiatric symptom [Unknown]
  - Stress [Unknown]
  - Irritability [Unknown]
  - Decreased immune responsiveness [Unknown]
  - Unevaluable event [Unknown]
  - Tension [Unknown]
  - Blood triglycerides increased [Unknown]
  - Blood cholesterol increased [Unknown]
  - Headache [Unknown]
  - Overweight [Unknown]
  - Feeling hot [Unknown]
  - Visual impairment [Not Recovered/Not Resolved]
  - Depressed mood [Unknown]
  - Presyncope [Unknown]
